FAERS Safety Report 7906134-9 (Version None)
Quarter: 2011Q4

REPORT INFORMATION
  Report Type: 
  Country: None (occurrence: None)
  Receive Date: 20111110
  Receipt Date: 20110221
  Transmission Date: 20120403
  Serious: Yes (Hospitalization)
  Sender: FDA-Public Use
  Company Number: JP-BAYER-2011-009577

PATIENT
  Age: 81 Year
  Sex: Male
  Weight: 45 kg

DRUGS (6)
  1. NEXAVAR [Suspect]
     Dosage: DAILY DOSE 400 MG
     Route: 048
     Dates: start: 20100220, end: 20100310
  2. MIGLITOL [Concomitant]
     Indication: TYPE 2 DIABETES MELLITUS
     Dosage: DAILY DOSE 150 MG
     Route: 048
     Dates: end: 20101112
  3. AMARYL [Concomitant]
     Indication: TYPE 2 DIABETES MELLITUS
     Dosage: DAILY DOSE 2 MG
     Route: 048
     Dates: end: 20101112
  4. NEXAVAR [Suspect]
     Dosage: DAILY DOSE 400 MG
     Route: 048
     Dates: start: 20100410, end: 20100922
  5. NEXAVAR [Suspect]
     Dosage: DAILY DOSE 800 MG
     Route: 048
     Dates: start: 20100311, end: 20100409
  6. NEXAVAR [Suspect]
     Indication: HEPATIC NEOPLASM MALIGNANT
     Dosage: 200 MG, QID
     Route: 048
     Dates: start: 20091109, end: 20100219

REACTIONS (4)
  - DIARRHOEA [None]
  - HYPOTHYROIDISM [None]
  - OEDEMA PERIPHERAL [None]
  - DECREASED APPETITE [None]
